FAERS Safety Report 8179618-9 (Version None)
Quarter: 2012Q1

REPORT INFORMATION
  Report Type: 
  Country: None (occurrence: None)
  Receive Date: 20120229
  Receipt Date: 20120229
  Transmission Date: 20120608
  Serious: No
  Sender: FDA-Public Use
  Company Number: None

PATIENT

DRUGS (1)
  1. HEPARIN SODIUM [Suspect]
     Indication: ANTICOAGULANT THERAPY
     Dosage: 1000 UNIT/ML
     Dates: start: 20081119

REACTIONS (3)
  - CHEST PAIN [None]
  - DIZZINESS [None]
  - HEADACHE [None]
